FAERS Safety Report 9990759 (Version 1)
Quarter: 2014Q1

REPORT INFORMATION
  Report Type: Spontaneous
  Country: US (occurrence: US)
  Receive Date: 20140310
  Receipt Date: 20140310
  Transmission Date: 20141002
  Serious: No
  Sender: FDA-Public Use
  Company Number: US-PFIZER INC-2014063505

PATIENT
  Age: 60 Year
  Sex: Male

DRUGS (1)
  1. ARTHROTEC [Suspect]
     Indication: ARTHRITIS
     Dosage: 2 TO 3 TIMES A DAY

REACTIONS (4)
  - Musculoskeletal discomfort [Unknown]
  - Mobility decreased [Unknown]
  - Chest pain [Unknown]
  - Blood pressure increased [Recovered/Resolved]
